FAERS Safety Report 10410355 (Version 2)
Quarter: 2014Q3

REPORT INFORMATION
  Report Type: Spontaneous
  Country: US (occurrence: US)
  Receive Date: 20140826
  Receipt Date: 20140826
  Transmission Date: 20150326
  Serious: Yes (Hospitalization)
  Sender: FDA-Public Use
  Company Number: US-GLAXOSMITHKLINE-A0731272A

PATIENT
  Sex: Male

DRUGS (1)
  1. AVANDIA [Suspect]
     Active Substance: ROSIGLITAZONE MALEATE
     Indication: TYPE 2 DIABETES MELLITUS
     Dosage: 2MG PER DAY
     Route: 048
     Dates: start: 2004, end: 200706

REACTIONS (10)
  - Discomfort [Unknown]
  - Myocardial infarction [Not Recovered/Not Resolved]
  - Blood pressure fluctuation [Unknown]
  - Pain [Unknown]
  - Swelling [Unknown]
  - Anxiety [Unknown]
  - Coronary artery disease [Unknown]
  - Erectile dysfunction [Unknown]
  - Diabetic complication [Unknown]
  - Depression [Unknown]
